FAERS Safety Report 5693129-1 (Version None)
Quarter: 2008Q2

REPORT INFORMATION
  Report Type: 
  Country: None (occurrence: None)
  Receive Date: 20080402
  Receipt Date: 20080402
  Transmission Date: 20081010
  Serious: Yes (Other)
  Sender: FDA-Public Use
  Company Number: None

PATIENT
  Age: 42 Year
  Sex: Female
  Weight: 55.3388 kg

DRUGS (4)
  1. TRASTUZUMAB GENENTECH [Suspect]
     Indication: BREAST CANCER
     Dosage: 5MG? EVERY 3 WEEKS IV
     Route: 042
     Dates: start: 20070505, end: 20080104
  2. HERCEPTIN [Concomitant]
  3. TAXOTERE [Concomitant]
  4. CYTOXAN [Concomitant]

REACTIONS (1)
  - CARDIOMYOPATHY [None]
